FAERS Safety Report 10926063 (Version 1)
Quarter: 2015Q1

REPORT INFORMATION
  Report Type: Spontaneous
  Country: US (occurrence: None)
  Receive Date: 20150316
  Receipt Date: 20150316
  Transmission Date: 20150721
  Serious: Yes (Hospitalization)
  Sender: FDA-Public Use
  Company Number: None

PATIENT
  Age: 24 Year
  Sex: Female
  Weight: 49.9 kg

DRUGS (2)
  1. N-ACETYLCYSTEINE 10% [Suspect]
     Active Substance: ACETYLCYSTEINE
     Route: 048
  2. DOCETAXEL/RADIATION [Suspect]
     Active Substance: DOCETAXEL
     Route: 042

REACTIONS (5)
  - Salivary hypersecretion [None]
  - Dyspnoea [None]
  - Dysphagia [None]
  - Radiation mucositis [None]
  - Stomatitis [None]

NARRATIVE: CASE EVENT DATE: 20150310
